FAERS Safety Report 17798263 (Version 3)
Quarter: 2020Q3

REPORT INFORMATION
  Report Type: Report from Study
  Country: JP (occurrence: JP)
  Receive Date: 20200518
  Receipt Date: 20200914
  Transmission Date: 20201102
  Serious: Yes (Other)
  Sender: FDA-Public Use
  Company Number: JP-JNJFOC-20200517676

PATIENT
  Age: 19 Month
  Sex: Female

DRUGS (1)
  1. REMICADE [Suspect]
     Active Substance: INFLIXIMAB
     Indication: INFLAMMATORY BOWEL DISEASE
     Route: 042

REACTIONS (7)
  - Off label use [Unknown]
  - Growth hormone deficiency [Recovering/Resolving]
  - Hypophysitis [Recovering/Resolving]
  - Therapeutic product effect decreased [Unknown]
  - Diabetes insipidus [Recovering/Resolving]
  - Infusion related reaction [Recovered/Resolved]
  - Product use issue [Unknown]

NARRATIVE: CASE EVENT DATE: 20160705
